FAERS Safety Report 13175408 (Version 1)
Quarter: 2017Q1

REPORT INFORMATION
  Report Type: Spontaneous
  Country: US (occurrence: US)
  Receive Date: 20170131
  Receipt Date: 20170131
  Transmission Date: 20170428
  Serious: Yes (Hospitalization)
  Sender: FDA-Public Use
  Company Number: None

PATIENT
  Age: 52 Year
  Sex: Female

DRUGS (1)
  1. OPSUMIT [Suspect]
     Active Substance: MACITENTAN
     Indication: HEART DISEASE CONGENITAL
     Route: 048
     Dates: start: 20160730, end: 20161230

REACTIONS (6)
  - Pyrexia [None]
  - Dyspnoea [None]
  - Myalgia [None]
  - Pneumonia [None]
  - Acute kidney injury [None]
  - Bone pain [None]

NARRATIVE: CASE EVENT DATE: 20170118
